FAERS Safety Report 8020526-1 (Version None)
Quarter: 2012Q1

REPORT INFORMATION
  Report Type: 
  Country: None (occurrence: None)
  Receive Date: 20120103
  Receipt Date: 20111228
  Transmission Date: 20120608
  Serious: Yes (Hospitalization)
  Sender: FDA-Public Use
  Company Number: SE-ROCHE-1016112

PATIENT
  Sex: Female
  Weight: 98 kg

DRUGS (15)
  1. LAXOBERAL [Concomitant]
     Dates: start: 20111108
  2. OMEPRAZOLE [Concomitant]
     Dates: start: 20111005
  3. CARBOPLATIN [Suspect]
     Route: 042
     Dates: start: 20111206
  4. ENALAPRIL MALEATE [Concomitant]
     Dates: start: 20110925, end: 20111126
  5. LASIX [Concomitant]
     Dates: start: 20111031
  6. AVASTIN [Suspect]
     Route: 042
     Dates: start: 20111206
  7. ACETAMINOPHEN [Concomitant]
  8. PRIMPERAN (SWEDEN) [Concomitant]
     Dates: start: 20111101
  9. AVASTIN [Suspect]
     Indication: PRODUCT USED FOR UNKNOWN INDICATION
     Dosage: DATE OF LAST DOSE PRIOR TO SAE: 01/NOV/2011
     Route: 042
     Dates: start: 20111101, end: 20111122
  10. PACLITAXEL [Suspect]
     Indication: PRODUCT USED FOR UNKNOWN INDICATION
     Route: 042
     Dates: start: 20111101, end: 20111115
  11. PACLITAXEL [Suspect]
     Route: 042
     Dates: start: 20111206
  12. CARBOPLATIN [Suspect]
     Indication: PRODUCT USED FOR UNKNOWN INDICATION
     Dosage: DATE OF LAST DOSE PRIOR TO SAE: 01/NOV/2011
     Route: 042
     Dates: start: 20111101, end: 20111122
  13. TRAMADOL HCL [Concomitant]
  14. ANDOLEX [Concomitant]
     Dates: start: 20111108, end: 20111108
  15. FRAGMIN [Concomitant]
     Dosage: 5000

REACTIONS (2)
  - FATIGUE [None]
  - BLOOD CREATININE INCREASED [None]
